FAERS Safety Report 22154581 (Version 1)
Quarter: 2023Q1

REPORT INFORMATION
  Report Type: Report from Study
  Country: CA (occurrence: CA)
  Receive Date: 20230330
  Receipt Date: 20230330
  Transmission Date: 20230418
  Serious: Yes (Other)
  Sender: FDA-Public Use
  Company Number: CA-TAKEDA-2023TUS031534

PATIENT
  Age: 73 Year
  Sex: Female

DRUGS (3)
  1. VEDOLIZUMAB [Suspect]
     Active Substance: VEDOLIZUMAB
     Indication: Crohn^s disease
     Dosage: 300 MILLIGRAM
     Route: 042
     Dates: start: 20190508
  2. COLESTID [Concomitant]
     Active Substance: COLESTIPOL HYDROCHLORIDE
     Dosage: UNK UNK, BID
  3. PREDNISONE [Concomitant]
     Active Substance: PREDNISONE
     Dosage: UNK

REACTIONS (2)
  - Oesophageal ulcer [Unknown]
  - Therapeutic reaction time decreased [Unknown]
